FAERS Safety Report 6850293-6 (Version None)
Quarter: 2010Q3

REPORT INFORMATION
  Report Type: 
  Country: None (occurrence: None)
  Receive Date: 20100716
  Receipt Date: 20071128
  Transmission Date: 20110219
  Serious: No
  Sender: FDA-Public Use
  Company Number: US-PFIZER INC-2007087165

PATIENT
  Sex: Female
  Weight: 64.41 kg

DRUGS (6)
  1. CHANTIX [Suspect]
     Indication: SMOKING CESSATION THERAPY
     Dates: start: 20070928
  2. ALLEGRA D 24 HOUR [Concomitant]
  3. TYLENOL [Concomitant]
     Indication: HEADACHE
  4. TYLENOL [Concomitant]
     Indication: PAIN
  5. IBUPROFEN [Concomitant]
     Indication: HEADACHE
  6. IBUPROFEN [Concomitant]
     Indication: PAIN

REACTIONS (2)
  - CYANOSIS [None]
  - OEDEMA PERIPHERAL [None]
